FAERS Safety Report 9463006 (Version 2)
Quarter: 2015Q2

REPORT INFORMATION
  Report Type: Spontaneous
  Country: CA (occurrence: CA)
  Receive Date: 20130816
  Receipt Date: 20150429
  Transmission Date: 20150821
  Serious: Yes (Congenital Anomaly, Other)
  Sender: FDA-Public Use
  Company Number: PHHY2013CA088363

PATIENT

DRUGS (2)
  1. MISOPROSTOL. [Suspect]
     Active Substance: MISOPROSTOL
     Indication: PRODUCT USED FOR UNKNOWN INDICATION
     Dosage: MATERNAL DOSE 800 UG
     Route: 064
  2. METHOTREXATE [Suspect]
     Active Substance: METHOTREXATE
     Indication: PRODUCT USED FOR UNKNOWN INDICATION
     Dosage: MATERNAL DOSE 50 MG/M2
     Route: 064

REACTIONS (14)
  - Microcephaly [Unknown]
  - Congenital nose malformation [Unknown]
  - Micrognathia [Unknown]
  - Limb malformation [Unknown]
  - Foetal growth restriction [Unknown]
  - Ear malformation [Unknown]
  - Clinodactyly [Unknown]
  - Gastrointestinal disorder congenital [Unknown]
  - Congenital oral malformation [Unknown]
  - Congenital musculoskeletal anomaly [Unknown]
  - Pulmonary malformation [Unknown]
  - Hypertelorism of orbit [Unknown]
  - Umbilical cord abnormality [Unknown]
  - Foetal exposure during pregnancy [Unknown]
